FAERS Safety Report 7064281-0 (Version None)
Quarter: 2010Q4

REPORT INFORMATION
  Report Type: 
  Country: None (occurrence: None)
  Receive Date: 20101027
  Receipt Date: 20101018
  Transmission Date: 20110411
  Serious: Yes (Other)
  Sender: FDA-Public Use
  Company Number: BR-ASTRAZENECA-2010SE49364

PATIENT
  Age: 72 Year
  Sex: Female
  Weight: 69 kg

DRUGS (4)
  1. CRESTOR [Suspect]
     Indication: HYPERCHOLESTEROLAEMIA
     Route: 048
     Dates: start: 20090101
  2. HIDANTAL [Concomitant]
     Indication: CONVULSION
     Route: 048
     Dates: start: 20060101
  3. ALPRAZOLAM [Concomitant]
     Indication: INSOMNIA
     Route: 048
     Dates: start: 20060101
  4. APROZIDE [Concomitant]
     Indication: HYPERTENSION
     Route: 048
     Dates: start: 20060101

REACTIONS (2)
  - LUNG NEOPLASM MALIGNANT [None]
  - MEDIASTINUM NEOPLASM [None]
